FAERS Safety Report 12595577 (Version 1)
Quarter: 2016Q3

REPORT INFORMATION
  Report Type: Spontaneous
  Country: US (occurrence: US)
  Receive Date: 20160726
  Receipt Date: 20160726
  Transmission Date: 20161109
  Serious: No
  Sender: FDA-Public Use
  Company Number: US-UNITED THERAPEUTICS-UNT-2016-006221

PATIENT
  Age: 54 Year
  Sex: Female
  Weight: 55.33 kg

DRUGS (1)
  1. TYVASO [Suspect]
     Active Substance: TREPROSTINIL
     Indication: PULMONARY HYPERTENSION
     Dosage: 18-54 MICROGRAMS, QID
     Dates: start: 20150824, end: 201603

REACTIONS (3)
  - Therapy cessation [Unknown]
  - Treatment noncompliance [Unknown]
  - Chest discomfort [Unknown]

NARRATIVE: CASE EVENT DATE: 201603
